FAERS Safety Report 8533048-6 (Version None)
Quarter: 2012Q3

REPORT INFORMATION
  Report Type: 
  Country: None (occurrence: None)
  Receive Date: 20120711
  Receipt Date: 20120629
  Transmission Date: 20120928
  Serious: Yes (Death)
  Sender: FDA-Public Use
  Company Number: US-2012-10812

PATIENT
  Age: 60 Year
  Sex: Male
  Weight: 108 kg

DRUGS (7)
  1. CYCLOPHOSPHAMIDE [Suspect]
     Indication: BONE MARROW CONDITIONING REGIMEN
     Dosage: UNKNOWN
  2. ACYCLOVIR [Concomitant]
  3. UROMITEXN (MESNA) [Concomitant]
  4. BUSULFEX [Suspect]
     Indication: BONE MARROW CONDITIONING REGIMEN
     Dosage: UNKNOWN
  5. ITRAZONAZOLE (ITRACONAZOLE) [Concomitant]
  6. IMMUNE GLOBULIN NOS [Concomitant]
  7. CIPROFLOXACIN HCL [Concomitant]

REACTIONS (6)
  - STENOTROPHOMONAS SEPSIS [None]
  - NO THERAPEUTIC RESPONSE [None]
  - PATHOGEN RESISTANCE [None]
  - GENERAL PHYSICAL HEALTH DETERIORATION [None]
  - ENDOTOXIC SHOCK [None]
  - NEUTROPHIL COUNT DECREASED [None]
